FAERS Safety Report 8473582-0 (Version None)
Quarter: 2012Q2

REPORT INFORMATION
  Report Type: 
  Country: None (occurrence: None)
  Receive Date: 20120628
  Receipt Date: 20120109
  Transmission Date: 20120825
  Serious: Yes (Life-Threatening, Other)
  Sender: FDA-Public Use
  Company Number: US-MYLANLABS-2011S1012357

PATIENT
  Age: 60 Year
  Sex: Female

DRUGS (17)
  1. LUTEIN /01638501/ [Concomitant]
     Route: 047
  2. VITAMIN D [Concomitant]
  3. DEPAKOTE ER [Concomitant]
  4. DEXTROAMPHETAMINE [Concomitant]
  5. MULTI-VITAMIN [Concomitant]
  6. APAP TAB [Concomitant]
     Indication: PAIN
  7. SYNTHROID [Concomitant]
  8. EVISTA [Concomitant]
  9. TRILEPTAL [Concomitant]
  10. RESTASIS [Concomitant]
     Dosage: OU
     Route: 047
  11. CLOZAPINE [Suspect]
     Indication: BIPOLAR DISORDER
     Route: 048
     Dates: end: 20111117
  12. OMEGA 3 /01334101/ [Concomitant]
  13. ACETYLCYSTEINE [Concomitant]
  14. DEXTROAMPHETAMINE [Concomitant]
  15. DEXTROAMPHETAMINE [Concomitant]
  16. VITAMIN E [Concomitant]
     Indication: TARDIVE DYSKINESIA
  17. PRESERVISION EYE VITAMIN AND MINERAL SUPPL. [Concomitant]
     Route: 047

REACTIONS (2)
  - LEUKOPENIA [None]
  - GRANULOCYTOPENIA [None]
